FAERS Safety Report 5628915-7 (Version None)
Quarter: 2008Q1

REPORT INFORMATION
  Report Type: 
  Country: None (occurrence: None)
  Receive Date: 20080214
  Receipt Date: 20080207
  Transmission Date: 20080703
  Serious: Yes (Hospitalization)
  Sender: FDA-Public Use
  Company Number: 023567

PATIENT
  Age: 27 Year
  Sex: Male

DRUGS (6)
  1. ADDERALL 10 [Suspect]
     Dosage: SEE IMAGE
     Route: 048
     Dates: start: 20071201, end: 20080101
  2. ADDERALL 10 [Suspect]
     Dosage: SEE IMAGE
     Route: 048
     Dates: start: 20071101
  3. ADDERALL XR 20 [Suspect]
     Indication: ATTENTION DEFICIT/HYPERACTIVITY DISORDER
     Dosage: 20 MG, QD, ORAL; 30MG, QID, ORAL
     Route: 048
     Dates: start: 20080102, end: 20080101
  4. ADDERALL XR 20 [Suspect]
     Indication: ATTENTION DEFICIT/HYPERACTIVITY DISORDER
     Dosage: 20 MG, QD, ORAL; 30MG, QID, ORAL
     Route: 048
     Dates: start: 20071115
  5. ESOMEPRAZOLE MAGNESIUM (ESOMEPRAZOLE MAGNESIUM) [Concomitant]
  6. CLONAZEPAM [Concomitant]

REACTIONS (11)
  - ABDOMINAL DISCOMFORT [None]
  - AGGRESSION [None]
  - ANGER [None]
  - ANXIETY [None]
  - EXOPHTHALMOS [None]
  - GASTROINTESTINAL DISORDER [None]
  - OVERDOSE [None]
  - THIRST [None]
  - URINARY HESITATION [None]
  - VASODILATATION [None]
  - WEIGHT DECREASED [None]
